FAERS Safety Report 7315687-3 (Version None)
Quarter: 2011Q1

REPORT INFORMATION
  Report Type: 
  Country: None (occurrence: None)
  Receive Date: 20110225
  Receipt Date: 20110216
  Transmission Date: 20110831
  Serious: Yes (Hospitalization, Other)
  Sender: FDA-Public Use
  Company Number: CA-JNJFOC-20100700234

PATIENT
  Sex: Female
  Weight: 69.9 kg

DRUGS (21)
  1. REMICADE [Suspect]
     Indication: RHEUMATOID ARTHRITIS
     Route: 042
  2. ADVAIR DISKUS 100/50 [Concomitant]
     Route: 055
  3. FOLIC ACID [Concomitant]
     Indication: PROPHYLAXIS
     Route: 048
  4. LYRICA [Concomitant]
     Route: 048
  5. CELEBREX [Concomitant]
  6. ZOLOFT [Concomitant]
     Indication: DEPRESSION
  7. HYDROCHLOROTHIAZIDE [Concomitant]
     Route: 048
  8. LYRICA [Concomitant]
     Route: 048
  9. ZOLOFT [Concomitant]
  10. LYRICA [Concomitant]
     Route: 048
  11. LYRICA [Concomitant]
     Indication: PAIN
     Route: 048
  12. SEROQUEL [Concomitant]
  13. CELEBREX [Concomitant]
     Indication: ARTHRITIS
  14. REMICADE [Suspect]
     Route: 042
  15. XALATAN [Concomitant]
     Indication: GLAUCOMA
  16. REMICADE [Suspect]
     Route: 042
  17. VITAMIN D [Concomitant]
  18. ADVAIR DISKUS 100/50 [Concomitant]
     Indication: ASTHMA
     Route: 055
  19. NEXIUM [Concomitant]
     Indication: GASTROOESOPHAGEAL REFLUX DISEASE
     Route: 048
  20. METHOTREXATE [Concomitant]
     Indication: RHEUMATOID ARTHRITIS
  21. SEROQUEL [Concomitant]

REACTIONS (1)
  - CHOLELITHIASIS [None]
